FAERS Safety Report 19919838 (Version 1)
Quarter: 2021Q4

REPORT INFORMATION
  Report Type: Report from Study
  Country: None (occurrence: US)
  Receive Date: 20211005
  Receipt Date: 20211005
  Transmission Date: 20220303
  Serious: Yes (Death, Other)
  Sender: FDA-Public Use
  Company Number: US-ABBVIE-21K-163-4106619-00

PATIENT
  Age: 85 Year
  Sex: Male

DRUGS (1)
  1. SYNTHROID [Suspect]
     Active Substance: LEVOTHYROXINE SODIUM
     Indication: Hypothyroidism
     Dosage: 1 TABLET FOR 6 DAYS AND 2 TABLETS ON THE 7TH DAY.
     Route: 048
     Dates: start: 202101

REACTIONS (2)
  - COVID-19 [Fatal]
  - Respiratory failure [Unknown]

NARRATIVE: CASE EVENT DATE: 20210101
